FAERS Safety Report 9384520 (Version 1)
Quarter: 2013Q3

REPORT INFORMATION
  Report Type: Spontaneous
  Country: BR (occurrence: BR)
  Receive Date: 20130705
  Receipt Date: 20130705
  Transmission Date: 20140515
  Serious: Yes (Other)
  Sender: FDA-Public Use
  Company Number: BR-SANOFI-AVENTIS-2013SA065478

PATIENT
  Age: 41 Year
  Sex: Male
  Weight: 88 kg

DRUGS (6)
  1. LANTUS [Suspect]
     Indication: TYPE 1 DIABETES MELLITUS
     Route: 058
  2. APIDRA SOLOSTAR [Suspect]
     Indication: TYPE 1 DIABETES MELLITUS
     Dosage: DOSE: 4IU BEFORE BREAKFAST, 5IU BEFORE LUNCH AND 4IU BEFORE DINNER
     Route: 058
  3. SOLOSTAR [Suspect]
     Indication: DEVICE THERAPY
  4. AUTOPEN 24 [Concomitant]
     Indication: DEVICE THERAPY
  5. AMLODIPINE BESILATE [Concomitant]
     Indication: HYPERTENSION
     Dosage: 1 TABLET IN THE MORNING AND 1 TABLET IN NIGHT.
     Route: 048
  6. TENORETIC [Concomitant]
     Indication: HYPERTENSION
     Dosage: 1 TABLET IN THE AFTERNOON.
     Route: 048

REACTIONS (2)
  - Renal disorder [Recovering/Resolving]
  - Condition aggravated [Recovering/Resolving]
